FAERS Safety Report 8442887-1 (Version None)
Quarter: 2012Q2

REPORT INFORMATION
  Report Type: 
  Country: None (occurrence: None)
  Receive Date: 20120615
  Receipt Date: 20120601
  Transmission Date: 20120825
  Serious: Yes (Other)
  Sender: FDA-Public Use
  Company Number: DE-TEVA-342171GER

PATIENT
  Age: 62 Year
  Sex: Female

DRUGS (9)
  1. CISPLATIN [Suspect]
     Indication: METASTASES TO LYMPH NODES
  2. PACLITAXEL [Suspect]
     Indication: METASTASES TO LUNG
     Route: 042
     Dates: start: 20080101
  3. PACLITAXEL [Suspect]
     Indication: METASTASES TO SKIN
  4. PACLITAXEL [Suspect]
     Indication: METASTASES TO LYMPH NODES
  5. CISPLATIN [Suspect]
     Indication: METASTASES TO SKIN
  6. PACLITAXEL [Suspect]
     Indication: METASTASES TO CENTRAL NERVOUS SYSTEM
  7. CISPLATIN [Suspect]
     Indication: METASTASES TO LUNG
     Route: 042
     Dates: start: 20080101
  8. CISPLATIN [Suspect]
     Indication: METASTASES TO CENTRAL NERVOUS SYSTEM
  9. SORAFENIB [Suspect]
     Dosage: 800 MILLIGRAM;
     Route: 048
     Dates: start: 20080101

REACTIONS (1)
  - CYSTOID MACULAR OEDEMA [None]
